FAERS Safety Report 8163511-1 (Version None)
Quarter: 2012Q1

REPORT INFORMATION
  Report Type: 
  Country: None (occurrence: None)
  Receive Date: 20120224
  Receipt Date: 20120216
  Transmission Date: 20120608
  Serious: Yes (Hospitalization, Disabling)
  Sender: FDA-Public Use
  Company Number: US-MERCK-1102USA02268

PATIENT
  Age: 63 Year
  Sex: Female
  Weight: 50 kg

DRUGS (16)
  1. FOSAMAX [Suspect]
     Indication: OSTEOPENIA
     Route: 048
     Dates: start: 20030401
  2. FOSAMAX PLUS D [Suspect]
     Route: 048
     Dates: start: 20060427
  3. CALCIUM (UNSPECIFIED) [Concomitant]
     Route: 065
  4. ACTONEL [Suspect]
     Indication: OSTEOPENIA
     Route: 065
     Dates: start: 20010101, end: 20030701
  5. FOSAMAX [Suspect]
     Route: 048
     Dates: start: 20051027, end: 20090101
  6. FOSAMAX PLUS D [Suspect]
     Indication: OSTEOPOROSIS
     Route: 048
     Dates: start: 20070501, end: 20090201
  7. FOSAMAX [Suspect]
     Indication: OSTEOPOROSIS
     Route: 048
     Dates: start: 20030401
  8. FOSAMAX PLUS D [Suspect]
     Route: 048
     Dates: start: 20080424
  9. FOSAMAX PLUS D [Suspect]
     Route: 048
     Dates: start: 20060427
  10. VITAMIN E [Concomitant]
     Route: 065
  11. FOSAMAX PLUS D [Suspect]
     Indication: OSTEOPENIA
     Route: 048
     Dates: start: 20070501, end: 20090201
  12. VITAMINS (UNSPECIFIED) [Concomitant]
     Route: 065
  13. FOSAMAX [Suspect]
     Route: 048
     Dates: start: 20051027, end: 20090101
  14. FOSAMAX PLUS D [Suspect]
     Route: 048
     Dates: start: 20080424
  15. PREMPRO [Concomitant]
     Route: 065
     Dates: start: 20000301
  16. ASCORBIC ACID [Concomitant]
     Route: 065

REACTIONS (25)
  - INSOMNIA [None]
  - BACK PAIN [None]
  - CERVICOBRACHIAL SYNDROME [None]
  - GASTRITIS [None]
  - FEMUR FRACTURE [None]
  - OEDEMA PERIPHERAL [None]
  - HEADACHE [None]
  - RIB FRACTURE [None]
  - HYPOAESTHESIA [None]
  - INJURY [None]
  - ROAD TRAFFIC ACCIDENT [None]
  - NECK PAIN [None]
  - ASTHENIA [None]
  - DYSPEPSIA [None]
  - FALL [None]
  - PATHOLOGICAL FRACTURE [None]
  - CARPAL TUNNEL SYNDROME [None]
  - TOOTH DISORDER [None]
  - PAIN IN EXTREMITY [None]
  - ARTHRALGIA [None]
  - COUGH [None]
  - ADVERSE DRUG REACTION [None]
  - BREAST PAIN [None]
  - HYPERCHOLESTEROLAEMIA [None]
  - HELICOBACTER TEST POSITIVE [None]
